FAERS Safety Report 17688406 (Version 1)
Quarter: 2020Q2

REPORT INFORMATION
  Report Type: Spontaneous
  Country: US (occurrence: US)
  Receive Date: 20200420
  Receipt Date: 20200420
  Transmission Date: 20200714
  Serious: No
  Sender: FDA-Public Use
  Company Number: None

PATIENT
  Age: 60 Year
  Sex: Female

DRUGS (1)
  1. LEDIPASVIR/SOFOSBUVIR 90MG/400MG ASEGUA THERAPEUTICS [Suspect]
     Active Substance: LEDIPASVIR\SOFOSBUVIR
     Indication: HEPATITIS C
     Dosage: ?          OTHER DOSE:90MG/400MG;?
     Route: 048
     Dates: start: 20200401

REACTIONS (4)
  - Nausea [None]
  - Food allergy [None]
  - Eructation [None]
  - Vomiting [None]

NARRATIVE: CASE EVENT DATE: 20200419
